FAERS Safety Report 6858225-1 (Version None)
Quarter: 2010Q3

REPORT INFORMATION
  Report Type: 
  Country: None (occurrence: None)
  Receive Date: 20100719
  Receipt Date: 20090507
  Transmission Date: 20110219
  Serious: No
  Sender: FDA-Public Use
  Company Number: US-PFIZER INC-2008011721

PATIENT
  Sex: Male
  Weight: 90.718 kg

DRUGS (5)
  1. CHANTIX [Suspect]
     Indication: SMOKING CESSATION THERAPY
     Dosage: 1 MG, 2X/DAY
     Dates: start: 20071201, end: 20080201
  2. ENALAPRIL MALEATE [Concomitant]
     Indication: HYPERTENSION
  3. ALLOPURINOL [Concomitant]
  4. HYDROCHLOROTHIAZIDE [Concomitant]
  5. SIMVASTATIN [Concomitant]
     Indication: BLOOD CHOLESTEROL INCREASED
     Dates: start: 20070101

REACTIONS (3)
  - DRUG INTOLERANCE [None]
  - MALAISE [None]
  - STRESS [None]
